FAERS Safety Report 5148968-2 (Version None)
Quarter: 2006Q4

REPORT INFORMATION
  Report Type: 
  Country: None (occurrence: None)
  Receive Date: 20061108
  Receipt Date: 20061024
  Transmission Date: 20070319
  Serious: Yes (Hospitalization)
  Sender: FDA-Public Use
  Company Number: 2006PV023795

PATIENT
  Age: 50 Year
  Sex: Female
  Weight: 128.368 kg

DRUGS (11)
  1. BYETTA [Suspect]
     Indication: DIABETES MELLITUS NON-INSULIN-DEPENDENT
     Dosage: 10 MCG;BID;SC; 5 MCG;BID;SC
     Route: 058
     Dates: start: 20060301, end: 20060701
  2. BYETTA [Suspect]
     Indication: DIABETES MELLITUS NON-INSULIN-DEPENDENT
     Dosage: 10 MCG;BID;SC; 5 MCG;BID;SC
     Route: 058
     Dates: start: 20060701
  3. AVANDAMET [Concomitant]
  4. GLIPIZIDE [Concomitant]
  5. HYDROCO/AP-AP [Concomitant]
  6. NAPROXEN [Concomitant]
  7. PREDNISONE TAB [Concomitant]
  8. CYMBALTA [Concomitant]
  9. LEVOXYL [Concomitant]
  10. ASPIR-LOW [Concomitant]
  11. LIPITOR [Concomitant]

REACTIONS (7)
  - ASTHENIA [None]
  - DECREASED APPETITE [None]
  - FIBROMA [None]
  - GASTROINTESTINAL DISORDER [None]
  - INJECTION SITE IRRITATION [None]
  - MYOCARDIAL INFARCTION [None]
  - RECTAL HAEMORRHAGE [None]
